FAERS Safety Report 11413801 (Version 1)
Quarter: 2015Q3

REPORT INFORMATION
  Report Type: Spontaneous
  Country: US (occurrence: US)
  Receive Date: 20150824
  Receipt Date: 20150824
  Transmission Date: 20151125
  Serious: Yes (Hospitalization)
  Sender: FDA-Public Use
  Company Number: US-IMPAX LABORATORIES, INC-2015-IPXL-00836

PATIENT
  Age: 58 Year
  Sex: Male
  Weight: 72 kg

DRUGS (3)
  1. RYTARY [Suspect]
     Active Substance: CARBIDOPA\LEVODOPA
     Indication: PARKINSON^S DISEASE
     Dosage: THREE CAPSULES THREE TIMES DAILY
     Route: 048
     Dates: start: 20150708
  2. ARICEPT [Concomitant]
     Active Substance: DONEPEZIL HYDROCHLORIDE
     Indication: DEMENTIA
     Dosage: UNK
     Route: 048
  3. COLACE [Concomitant]
     Active Substance: DOCUSATE SODIUM
     Indication: FAECES HARD
     Dosage: UNK
     Route: 048

REACTIONS (13)
  - Gastrointestinal motility disorder [Recovered/Resolved]
  - Drug ineffective [Unknown]
  - Abasia [Recovered/Resolved]
  - Diarrhoea [Recovered/Resolved]
  - Somnolence [Unknown]
  - Agitation [Not Recovered/Not Resolved]
  - Treatment noncompliance [Unknown]
  - Myoclonus [Unknown]
  - Muscle rigidity [Recovered/Resolved]
  - Lethargy [Not Recovered/Not Resolved]
  - Speech disorder [Unknown]
  - Bradykinesia [Recovered/Resolved]
  - Abnormal behaviour [Unknown]

NARRATIVE: CASE EVENT DATE: 201507
